FAERS Safety Report 8349260-5 (Version None)
Quarter: 2012Q2

REPORT INFORMATION
  Report Type: 
  Country: None (occurrence: None)
  Receive Date: 20120510
  Receipt Date: 20120507
  Transmission Date: 20120825
  Serious: Yes (Death)
  Sender: FDA-Public Use
  Company Number: PHHY2012BR039011

PATIENT
  Sex: Female

DRUGS (1)
  1. ONBREZ [Suspect]

REACTIONS (2)
  - CARDIAC DISORDER [None]
  - LUNG DISORDER [None]
